FAERS Safety Report 7171234-0 (Version None)
Quarter: 2010Q4

REPORT INFORMATION
  Report Type: 
  Country: None (occurrence: None)
  Receive Date: 20101217
  Receipt Date: 20101210
  Transmission Date: 20110411
  Serious: Yes (Death)
  Sender: FDA-Public Use
  Company Number: JP-ALLERGAN-1016272US

PATIENT
  Age: 57 Year
  Sex: Male
  Weight: 52 kg

DRUGS (2)
  1. BOTOX INJECTION 100 [Suspect]
     Indication: TORTICOLLIS
     Dosage: 70 UNITS, SINGLE
     Route: 030
     Dates: start: 20060720, end: 20060720
  2. CEREDIST [Concomitant]
     Route: 048

REACTIONS (1)
  - DEATH [None]
